FAERS Safety Report 11620112 (Version 2)
Quarter: 2015Q4

REPORT INFORMATION
  Report Type: Spontaneous
  Country: US (occurrence: US)
  Receive Date: 20151012
  Receipt Date: 20151015
  Transmission Date: 20160304
  Serious: No
  Sender: FDA-Public Use
  Company Number: US-SA-2015SA101123

PATIENT
  Sex: Male

DRUGS (1)
  1. AFREZZA [Suspect]
     Active Substance: INSULIN HUMAN
     Indication: DIABETES MELLITUS
     Dosage: DOSE:28 UNIT(S)
     Route: 055
     Dates: start: 20150611, end: 20150704

REACTIONS (2)
  - Cough [Recovering/Resolving]
  - Painful respiration [Unknown]

NARRATIVE: CASE EVENT DATE: 20150704
